FAERS Safety Report 4667029-X (Version None)
Quarter: 2005Q2

REPORT INFORMATION
  Report Type: 
  Country: None (occurrence: None)
  Receive Date: 20050520
  Receipt Date: 20041004
  Transmission Date: 20051028
  Serious: Yes (Other)
  Sender: FDA-Public Use
  Company Number: PHEH2004US10689

PATIENT
  Age: 55 Year
  Sex: Female

DRUGS (4)
  1. PACLITAXEL [Concomitant]
     Indication: BREAST CANCER
     Dosage: 75 MG/M2, QW
     Dates: start: 20000301
  2. TRASTUZUMAB [Concomitant]
     Indication: BREAST CANCER
     Dosage: 2 MG/M2, QW
     Dates: start: 20000301
  3. PAMIDRONATE DISODIUM [Suspect]
     Indication: METASTASES TO BONE
     Dates: start: 20020322, end: 20040813
  4. AREDIA [Suspect]
     Indication: METASTASES TO BONE
     Dosage: 90 MG, QMO
     Dates: start: 20010308, end: 20020222

REACTIONS (9)
  - BONE DISORDER [None]
  - BONE MARROW DISORDER [None]
  - INFECTION [None]
  - ORAL PAIN [None]
  - ORAL SOFT TISSUE DISORDER [None]
  - OSTEOMYELITIS CHRONIC [None]
  - OSTEONECROSIS [None]
  - PAIN IN JAW [None]
  - SWELLING [None]
